FAERS Safety Report 4440944-8 (Version None)
Quarter: 2004Q3

REPORT INFORMATION
  Report Type: 
  Country: None (occurrence: None)
  Receive Date: 20040728
  Receipt Date: 20040409
  Transmission Date: 20050211
  Serious: No
  Sender: FDA-Public Use
  Company Number: USA040464585

PATIENT
  Sex: Male

DRUGS (2)
  1. STRATTERA [Suspect]
     Dosage: 40 MG
     Dates: start: 20040408
  2. LOTREL [Concomitant]

REACTIONS (5)
  - ASTHENIA [None]
  - FEELING ABNORMAL [None]
  - HYPOTENSION [None]
  - MIDDLE INSOMNIA [None]
  - PARAESTHESIA [None]
